FAERS Safety Report 18567618 (Version 6)
Quarter: 2022Q3

REPORT INFORMATION
  Report Type: Other
  Country: JP (occurrence: JP)
  Receive Date: 20201202
  Receipt Date: 20220906
  Transmission Date: 20221026
  Serious: Yes (Death, Hospitalization, Other)
  Sender: FDA-Public Use
  Company Number: JP-CHUGAI-A2020051738ROCHE

PATIENT
  Age: 85 Year
  Sex: Female
  Weight: 44 kg

DRUGS (11)
  1. TECENTRIQ [Suspect]
     Active Substance: ATEZOLIZUMAB
     Indication: Hepatocellular carcinoma
     Dosage: 1200MG,ONCE IN1DAY
     Route: 041
     Dates: start: 20201106, end: 20201106
  2. TECENTRIQ [Suspect]
     Active Substance: ATEZOLIZUMAB
     Dosage: 1200 MILLIGRAM, ONCE/3WEE
     Route: 041
  3. AVASTIN [Suspect]
     Active Substance: BEVACIZUMAB
     Indication: Hepatocellular carcinoma
     Dosage: 660MG,ONCE IN1DAY
     Route: 041
     Dates: start: 20201106, end: 20201106
  4. AVASTIN [Suspect]
     Active Substance: BEVACIZUMAB
     Dosage: 15 MILLIGRAM/KILOGRAM, ONCE/3WEEKS
     Route: 041
  5. VASOLAN [Concomitant]
     Dosage: DOSAGE IS UNCERTAIN
     Route: 048
     Dates: end: 20201129
  6. CANDESARTAN CILEXETIL [Concomitant]
     Active Substance: CANDESARTAN CILEXETIL
     Dosage: DOSAGE IS UNCERTAIN.
     Route: 048
     Dates: end: 20201128
  7. TEPRENONE [Concomitant]
     Active Substance: TEPRENONE
     Dosage: DOSAGE IS UNCERTAIN.
     Route: 048
     Dates: end: 20201127
  8. RABEPRAZOLE SODIUM [Concomitant]
     Active Substance: RABEPRAZOLE SODIUM
     Dosage: DOSAGE IS UNCERTAIN.
     Route: 048
     Dates: end: 20201124
  9. GLYCYRON [Concomitant]
     Dosage: DOSAGE IS UNCERTAIN.
     Route: 048
     Dates: end: 20201127
  10. SPIRONOLACTONE [Concomitant]
     Active Substance: SPIRONOLACTONE
     Route: 048
  11. URSODIOL [Concomitant]
     Active Substance: URSODIOL
     Route: 048

REACTIONS (2)
  - Disseminated intravascular coagulation [Unknown]
  - Pneumonia [Fatal]

NARRATIVE: CASE EVENT DATE: 20201111
